FAERS Safety Report 11567205 (Version 1)
Quarter: 2015Q3

REPORT INFORMATION
  Report Type: Spontaneous
  Country: US (occurrence: US)
  Receive Date: 20150916
  Receipt Date: 20150916
  Transmission Date: 20151125
  Serious: No
  Sender: FDA-Public Use
  Company Number: US-ELI_LILLY_AND_COMPANY-US200907002509

PATIENT
  Age: 76 Year
  Sex: Female

DRUGS (2)
  1. DIURETICS [Concomitant]
     Active Substance: UNSPECIFIED INGREDIENT
  2. FORTEO [Suspect]
     Active Substance: TERIPARATIDE
     Indication: OSTEOPOROSIS
     Dosage: 20 UG, DAILY (1/D)
     Dates: start: 200906, end: 200907

REACTIONS (5)
  - Fatigue [Not Recovered/Not Resolved]
  - Treatment noncompliance [Unknown]
  - Nervousness [Not Recovered/Not Resolved]
  - Muscular weakness [Not Recovered/Not Resolved]
  - Depression [Not Recovered/Not Resolved]

NARRATIVE: CASE EVENT DATE: 200906
